FAERS Safety Report 5594166-8 (Version None)
Quarter: 2008Q1

REPORT INFORMATION
  Report Type: 
  Country: None (occurrence: None)
  Receive Date: 20080115
  Receipt Date: 20080108
  Transmission Date: 20080703
  Serious: Yes (Hospitalization)
  Sender: FDA-Public Use
  Company Number: S08-USA-00055-01

PATIENT
  Age: 79 Year
  Sex: Female

DRUGS (6)
  1. NAMENDA [Suspect]
     Indication: VASCULAR DEMENTIA
     Dosage: 5 MG QD PO
     Route: 048
     Dates: start: 20080101, end: 20080107
  2. NAMENDA [Suspect]
     Indication: VASCULAR DEMENTIA
     Dosage: 5 MG BID PO
     Route: 048
     Dates: start: 20080108
  3. COUMADIN [Concomitant]
  4. DIGOXIN [Concomitant]
  5. LASIX [Concomitant]
  6. ASPIRIN [Concomitant]

REACTIONS (1)
  - SUBCUTANEOUS HAEMATOMA [None]
